FAERS Safety Report 5508931-6 (Version None)
Quarter: 2007Q4

REPORT INFORMATION
  Report Type: 
  Country: None (occurrence: None)
  Receive Date: 20071031
  Receipt Date: 20070806
  Transmission Date: 20080405
  Serious: No
  Sender: FDA-Public Use
  Company Number: 2007PV033255

PATIENT
  Age: 63 Year
  Sex: Female

DRUGS (5)
  1. SYMLIN [Suspect]
     Indication: TYPE 2 DIABETES MELLITUS
     Dosage: 120 MCG;TID;SC; 60 MCG;TID;SC
     Route: 058
     Dates: start: 20070727, end: 20070730
  2. SYMLIN [Suspect]
     Indication: TYPE 2 DIABETES MELLITUS
     Dosage: 120 MCG;TID;SC; 60 MCG;TID;SC
     Route: 058
     Dates: start: 20070731
  3. METFORMIN HCL [Concomitant]
  4. AMARYL [Concomitant]
  5. BYETTA [Concomitant]

REACTIONS (3)
  - BLOOD GLUCOSE INCREASED [None]
  - INJECTION SITE RASH [None]
  - NAUSEA [None]
